FAERS Safety Report 5906687-6 (Version None)
Quarter: 2008Q4

REPORT INFORMATION
  Report Type: 
  Country: None (occurrence: None)
  Receive Date: 20081002
  Receipt Date: 20080917
  Transmission Date: 20090506
  Serious: Yes (Other)
  Sender: FDA-Public Use
  Company Number: FR-GENENTECH-267434

PATIENT
  Age: 12 Year
  Sex: Female

DRUGS (1)
  1. XOLAIR [Suspect]
     Indication: ASTHMA
     Dosage: 225 MG, Q15D
     Route: 058

REACTIONS (4)
  - DRUG ERUPTION [None]
  - PETECHIAE [None]
  - PRURITUS [None]
  - URTICARIA [None]
